FAERS Safety Report 22588838 (Version 1)
Quarter: 2023Q2

REPORT INFORMATION
  Report Type: Spontaneous
  Country: US (occurrence: None)
  Receive Date: 20230608
  Receipt Date: 20230608
  Transmission Date: 20230721
  Serious: Yes (Other)
  Sender: FDA-Public Use
  Company Number: None

PATIENT
  Sex: Male

DRUGS (7)
  1. ZENPEP [Suspect]
     Active Substance: PANCRELIPASE AMYLASE\PANCRELIPASE LIPASE\PANCRELIPASE PROTEASE
     Indication: Cystic fibrosis
     Dosage: FREQUENCY : 3 TIMES A DAY;?
     Dates: start: 20150919
  2. AZITHROMYCIN [Concomitant]
     Active Substance: AZITHROMYCIN
  3. COMPLETE FORM D5000 SOFTGEL [Concomitant]
  4. ESOMEPRA MAG CAP DR [Concomitant]
  5. TRIKAFTA [Concomitant]
  6. VITAMIN D3 5000UNIT [Concomitant]
  7. VITAMIN D3 50,000 UNIT CAP [Concomitant]

REACTIONS (2)
  - Palmar-plantar erythrodysaesthesia syndrome [None]
  - Infective pulmonary exacerbation of cystic fibrosis [None]
